FAERS Safety Report 9539975 (Version 1)
Quarter: 2013Q3

REPORT INFORMATION
  Report Type: Spontaneous
  Country: US (occurrence: US)
  Receive Date: 20130920
  Receipt Date: 20130920
  Transmission Date: 20140515
  Serious: Yes (Other)
  Sender: FDA-Public Use
  Company Number: US-FRI-1000048973

PATIENT
  Age: 81 Year
  Sex: Male

DRUGS (1)
  1. TEFLARO [Suspect]

REACTIONS (1)
  - Bone marrow failure [Not Recovered/Not Resolved]
